FAERS Safety Report 18092652 (Version 1)
Quarter: 2020Q3

REPORT INFORMATION
  Report Type: Spontaneous
  Country: US (occurrence: US)
  Receive Date: 20200730
  Receipt Date: 20200730
  Transmission Date: 20201103
  Serious: No
  Sender: FDA-Public Use
  Company Number: US-GLAXOSMITHKLINE-US2020140061

PATIENT
  Age: 62 Year
  Sex: Female

DRUGS (1)
  1. FLONASE ALLERGY RELIEF [Suspect]
     Active Substance: FLUTICASONE PROPIONATE
     Indication: HYPERSENSITIVITY
     Dosage: UNK
     Dates: start: 20200708, end: 20200721

REACTIONS (4)
  - Psychomotor hyperactivity [Recovered/Resolved]
  - Adverse drug reaction [Recovered/Resolved]
  - Heart rate irregular [Recovered/Resolved]
  - Feeling abnormal [Unknown]
